FAERS Safety Report 8997578 (Version 1)
Quarter: 2013Q1

REPORT INFORMATION
  Report Type: Spontaneous
  Country: US (occurrence: US)
  Receive Date: 20130104
  Receipt Date: 20130104
  Transmission Date: 20140127
  Serious: Yes (Hospitalization)
  Sender: FDA-Public Use
  Company Number: US-TEVA-378792USA

PATIENT
  Age: 56 Year
  Sex: Female

DRUGS (1)
  1. DOXYCYCLINE [Suspect]
     Indication: CELLULITIS

REACTIONS (1)
  - Hallucination, visual [Recovered/Resolved]
